FAERS Safety Report 9144024 (Version 4)
Quarter: 2013Q4

REPORT INFORMATION
  Report Type: Spontaneous
  Country: US (occurrence: US)
  Receive Date: 20130306
  Receipt Date: 20131113
  Transmission Date: 20140711
  Serious: Yes (Hospitalization, Other)
  Sender: FDA-Public Use
  Company Number: US-009507513-1108USA01230

PATIENT
  Sex: Female
  Weight: 69.84 kg

DRUGS (4)
  1. FOSAMAX [Suspect]
     Indication: PROPHYLAXIS
     Dosage: 70 MG, UNK
     Route: 048
     Dates: start: 20030827, end: 2009
  2. FOSAMAX [Suspect]
     Dosage: 70 MG, UNK
     Route: 048
     Dates: start: 20100329
  3. ALENDRONATE SODIUM [Suspect]
     Dosage: 70 MG, UNK
     Route: 048
     Dates: start: 20090927
  4. SYNTHROID [Concomitant]
     Indication: HYPOTHYROIDISM

REACTIONS (37)
  - Femur fracture [Recovered/Resolved]
  - Intramedullary rod insertion [Unknown]
  - Arthralgia [Unknown]
  - Osteoporosis [Unknown]
  - Bunion [Unknown]
  - Bursitis [Unknown]
  - Tooth disorder [Unknown]
  - Tooth disorder [Unknown]
  - Tooth disorder [Unknown]
  - Tooth disorder [Unknown]
  - Tooth disorder [Unknown]
  - Intervertebral disc degeneration [Unknown]
  - Nerve root compression [Unknown]
  - Osteoarthritis [Unknown]
  - Plantar fasciitis [Unknown]
  - Foot fracture [Unknown]
  - Vascular malformation peripheral [Unknown]
  - Osteopenia [Unknown]
  - Foot fracture [Recovering/Resolving]
  - Exostosis [Unknown]
  - Exostosis [Unknown]
  - Foot deformity [Unknown]
  - Fracture nonunion [Unknown]
  - Osteoarthritis [Unknown]
  - Bursitis [Unknown]
  - Ligament rupture [Unknown]
  - Disorientation [Unknown]
  - Drug interaction [Unknown]
  - Onychalgia [Unknown]
  - Foot fracture [Unknown]
  - Anaemia [Unknown]
  - Osteoarthritis [Unknown]
  - Osteoarthritis [Unknown]
  - Bursitis [Unknown]
  - Medical device removal [Unknown]
  - Limb discomfort [Unknown]
  - Headache [Unknown]
